FAERS Safety Report 20027876 (Version 1)
Quarter: 2021Q4

REPORT INFORMATION
  Report Type: Report from Study
  Country: US (occurrence: US)
  Receive Date: 20211103
  Receipt Date: 20211103
  Transmission Date: 20220303
  Serious: Yes (Death, Other)
  Sender: FDA-Public Use
  Company Number: US-SUN PHARMACEUTICAL INDUSTRIES LTD-2021R1-316324

PATIENT
  Age: 63 Year
  Sex: Female

DRUGS (3)
  1. DOXORUBICIN [Suspect]
     Active Substance: DOXORUBICIN
     Indication: Pseudomyxoma peritonei
     Dosage: 15 MILLIGRAM/SQ. METER
     Route: 065
  2. MITOMYCIN C [Suspect]
     Active Substance: MITOMYCIN
     Indication: Pseudomyxoma peritonei
     Dosage: 15 MILLIGRAM/SQ. METER
     Route: 065
  3. FLUOROURACIL [Suspect]
     Active Substance: FLUOROURACIL
     Indication: Pseudomyxoma peritonei
     Dosage: 400 MILLIGRAM/SQ. METER
     Route: 065

REACTIONS (2)
  - Pancreatitis [Fatal]
  - Neutropenia [Fatal]
